FAERS Safety Report 5804438-7 (Version None)
Quarter: 2008Q3

REPORT INFORMATION
  Report Type: 
  Country: None (occurrence: None)
  Receive Date: 20080709
  Receipt Date: 20080708
  Transmission Date: 20090109
  Serious: Yes (Hospitalization, Other)
  Sender: FDA-Public Use
  Company Number: A0736444A

PATIENT
  Age: 30 Year
  Sex: Female

DRUGS (2)
  1. ALLI [Suspect]
     Route: 048
     Dates: start: 20071001, end: 20080706
  2. MULTI-VITAMIN [Concomitant]

REACTIONS (7)
  - CONVULSION [None]
  - DYSKINESIA [None]
  - GRAND MAL CONVULSION [None]
  - LOSS OF CONSCIOUSNESS [None]
  - MOUTH INJURY [None]
  - TONGUE BITING [None]
  - URINARY INCONTINENCE [None]
